FAERS Safety Report 6909338-7 (Version None)
Quarter: 2010Q3

REPORT INFORMATION
  Report Type: 
  Country: None (occurrence: None)
  Receive Date: 20100805
  Receipt Date: 20100803
  Transmission Date: 20110219
  Serious: Yes (Life-Threatening)
  Sender: FDA-Public Use
  Company Number: PHHY2010IT50618

PATIENT
  Sex: Female

DRUGS (1)
  1. SANDIMMUNE [Suspect]
     Dosage: UNK
     Dates: start: 20100610, end: 20100610

REACTIONS (3)
  - CHILLS [None]
  - HYPOTENSION [None]
  - LARYNGOSPASM [None]
